FAERS Safety Report 4311412-9 (Version None)
Quarter: 2004Q1

REPORT INFORMATION
  Report Type: 
  Country: None (occurrence: None)
  Receive Date: 20040303
  Receipt Date: 20040303
  Transmission Date: 20041129
  Serious: Yes (Hospitalization)
  Sender: FDA-Public Use
  Company Number: None

PATIENT
  Sex: Male

DRUGS (4)
  1. CISPLATIN [Suspect]
     Indication: GASTRIC CANCER
     Dosage: 56 MG IV
     Route: 042
     Dates: start: 20040209
  2. TAXOL [Suspect]
     Indication: GASTRIC CANCER
     Dosage: 113 MG VIA PUMP
     Dates: start: 20040209
  3. SYNTHROID [Concomitant]
  4. OXYCODONE [Concomitant]

REACTIONS (11)
  - ABDOMINAL PAIN [None]
  - BACTERIA STOOL IDENTIFIED [None]
  - BEZOAR [None]
  - CYST [None]
  - DIZZINESS [None]
  - NAUSEA [None]
  - PERITONITIS [None]
  - PNEUMONIA [None]
  - PYREXIA [None]
  - SYNCOPE [None]
  - VOMITING [None]
